FAERS Safety Report 8016823-6 (Version None)
Quarter: 2012Q1

REPORT INFORMATION
  Report Type: 
  Country: None (occurrence: None)
  Receive Date: 20120102
  Receipt Date: 20111226
  Transmission Date: 20120608
  Serious: Yes (Other)
  Sender: FDA-Public Use
  Company Number: FR-AMGEN-FRASP2011065333

PATIENT
  Age: 62 Year
  Sex: Male
  Weight: 81.995 kg

DRUGS (2)
  1. ENBREL [Suspect]
     Indication: PSORIATIC ARTHROPATHY
     Dosage: 25 MG, WEEKLY
     Dates: start: 20040413, end: 20111205
  2. PANTOPRAZOLE [Concomitant]
     Indication: ULCER
     Dosage: 20 MG, 1X/DAY
     Route: 048
     Dates: start: 20100308

REACTIONS (1)
  - PROSTATE CANCER [None]
